FAERS Safety Report 5831769-7 (Version None)
Quarter: 2008Q3

REPORT INFORMATION
  Report Type: 
  Country: None (occurrence: None)
  Receive Date: 20080803
  Receipt Date: 20080724
  Transmission Date: 20090109
  Serious: Yes (Death, Other)
  Sender: FDA-Public Use
  Company Number: PHBS2008ES05155

PATIENT
  Age: 55 Year
  Sex: Female

DRUGS (1)
  1. ZOLEDRONIC ACID [Suspect]
     Indication: BONE PAIN
     Dosage: UNK
     Dates: start: 20030501

REACTIONS (19)
  - BONE DISORDER [None]
  - CONDITION AGGRAVATED [None]
  - DEATH [None]
  - ERYTHEMA [None]
  - FACIAL PAIN [None]
  - GINGIVAL ULCERATION [None]
  - INDURATION [None]
  - MASTICATION DISORDER [None]
  - OEDEMA [None]
  - ORAL CAVITY FISTULA [None]
  - ORAL PUSTULE [None]
  - ORAL SURGERY [None]
  - OSTEONECROSIS [None]
  - PAIN IN JAW [None]
  - QUALITY OF LIFE DECREASED [None]
  - SURGERY [None]
  - TOOTH ABSCESS [None]
  - TOOTH EXTRACTION [None]
  - TOOTH LOSS [None]
